FAERS Safety Report 5213201-X (Version None)
Quarter: 2007Q1

REPORT INFORMATION
  Report Type: 
  Country: None (occurrence: None)
  Receive Date: 20070119
  Receipt Date: 20070111
  Transmission Date: 20070707
  Serious: Yes (Hospitalization)
  Sender: FDA-Public Use
  Company Number: GB-GLAXOSMITHKLINE-B0454291A

PATIENT
  Age: 15 Year
  Sex: Female
  Weight: 57 kg

DRUGS (2)
  1. IMIGRAN [Suspect]
     Indication: MIGRAINE
     Dosage: 10MG TWICE PER DAY
     Route: 045
     Dates: start: 20061207, end: 20061207
  2. PARACETAMOL [Concomitant]

REACTIONS (5)
  - COORDINATION ABNORMAL [None]
  - DISTURBANCE IN ATTENTION [None]
  - GAIT DISTURBANCE [None]
  - MEMORY IMPAIRMENT [None]
  - SENSORY DISTURBANCE [None]
